FAERS Safety Report 8743596 (Version 2)
Quarter: 2013Q1

REPORT INFORMATION
  Report Type: Spontaneous
  Country: US (occurrence: US)
  Receive Date: 20120824
  Receipt Date: 20130201
  Transmission Date: 20140127
  Serious: Yes (Other)
  Sender: FDA-Public Use
  Company Number: US-PFIZER INC-2012079630

PATIENT
  Sex: Female

DRUGS (3)
  1. CITALOPRAM [Suspect]
     Dosage: UNK
     Route: 065
  2. AZITHROMYCIN [Interacting]
     Dosage: UNK
     Route: 065
  3. ERYTHROMYCIN [Suspect]
     Indication: GASTROINTESTINAL INFECTION
     Dosage: UNK
     Route: 065

REACTIONS (5)
  - Drug interaction [Recovered/Resolved]
  - Drug ineffective [Recovered/Resolved]
  - Hypoxia [Recovered/Resolved]
  - Heart rate increased [Recovered/Resolved]
  - Depression [Recovered/Resolved]
